FAERS Safety Report 4549658-7 (Version None)
Quarter: 2005Q1

REPORT INFORMATION
  Report Type: 
  Country: None (occurrence: None)
  Receive Date: 20050111
  Receipt Date: 20050104
  Transmission Date: 20050727
  Serious: Yes (Hospitalization)
  Sender: FDA-Public Use
  Company Number: GB-GLAXOSMITHKLINE-B0363376A

PATIENT
  Age: 66 Year

DRUGS (7)
  1. CEFUROXIME SODIUM [Suspect]
     Indication: CAMPYLOBACTER INFECTION
     Dosage: 1.5G PER DAY
     Route: 042
     Dates: start: 20041023, end: 20041026
  2. CO-AMOXICLAV [Suspect]
     Indication: CAMPYLOBACTER INFECTION
     Dosage: 625MG PER DAY
     Route: 048
     Dates: start: 20041026
  3. METRONIDAZOLE [Suspect]
     Indication: CAMPYLOBACTER INFECTION
     Dosage: 500MG PER DAY
     Route: 042
     Dates: start: 20041023, end: 20041025
  4. BENDROFLUMETHIAZIDE [Concomitant]
     Dosage: 2.5MG PER DAY
     Route: 048
  5. MEBEVERINE [Concomitant]
     Dosage: 135MG PER DAY
     Route: 048
  6. LOPERAMIDE HCL [Concomitant]
     Route: 048
  7. PROCHLORPERAZINE [Concomitant]
     Dosage: 5MG PER DAY
     Route: 048

REACTIONS (1)
  - JAUNDICE [None]
